FAERS Safety Report 9815341 (Version 1)
Quarter: 2014Q1

REPORT INFORMATION
  Report Type: Spontaneous
  Country: US (occurrence: US)
  Receive Date: 20140114
  Receipt Date: 20140114
  Transmission Date: 20141002
  Serious: No
  Sender: FDA-Public Use
  Company Number: US-009507513-1401USA003213

PATIENT
  Sex: Female

DRUGS (2)
  1. NEXPLANON [Suspect]
     Indication: CONTRACEPTION
     Dosage: 1 ROD, THREE YEARS
     Route: 059
  2. NEXPLANON [Suspect]
     Dosage: 1 DF
     Route: 059

REACTIONS (4)
  - Implant site inflammation [Unknown]
  - Implant site irritation [Unknown]
  - Implant site swelling [Unknown]
  - Device expulsion [Unknown]
